FAERS Safety Report 8906082 (Version 2)
Quarter: 2013Q3

REPORT INFORMATION
  Report Type: Spontaneous
  Country: US (occurrence: US)
  Receive Date: 20121112
  Receipt Date: 20130902
  Transmission Date: 20140515
  Serious: Yes (Other)
  Sender: FDA-Public Use
  Company Number: US-PFIZER INC-2012280374

PATIENT
  Age: 58 Year
  Sex: Female

DRUGS (3)
  1. EFFEXOR [Suspect]
     Indication: DEPRESSION
     Dosage: UNK
  2. EFFEXOR [Suspect]
     Dosage: 150 MG, 2X/DAY
  3. BUSPAR [Suspect]
     Indication: POST-TRAUMATIC STRESS DISORDER
     Dosage: UNK, AS NEEDED

REACTIONS (3)
  - Depression [Unknown]
  - Drug ineffective [Unknown]
  - Fatigue [Unknown]
